FAERS Safety Report 8987063 (Version 1)
Quarter: 2012Q4

REPORT INFORMATION
  Report Type: 
  Country: FR (occurrence: FR)
  Receive Date: 20121227
  Receipt Date: 20121227
  Transmission Date: 20130627
  Serious: Yes (Hospitalization)
  Sender: FDA-Public Use
  Company Number: FR-MERCK-1212FRA007684

PATIENT
  Age: 63 Year
  Sex: Male

DRUGS (11)
  1. TIENAM 500MG/500MG, POUDRE POUR PERFUSION [Suspect]
     Dosage: UNK
     Route: 042
     Dates: start: 20110830, end: 201109
  2. CANCIDAS [Suspect]
     Dosage: UNK
     Route: 048
     Dates: start: 20110831
  3. CYCLOSPORINE [Suspect]
     Dosage: 240 mg, qd
     Route: 051
     Dates: start: 20110824, end: 201109
  4. BACTRIM [Suspect]
     Indication: PROPHYLAXIS
     Dosage: 1 DF, qd
     Route: 048
     Dates: start: 20120824, end: 201209
  5. AMIKACIN [Suspect]
     Dosage: UNK
     Dates: start: 20110830, end: 20110909
  6. COLIMYCINE [Suspect]
     Indication: PROPHYLAXIS
     Dosage: 1500000 IU, qd
     Dates: start: 20110824, end: 201109
  7. VANCOMYCIN [Suspect]
     Dosage: 2 g, qd
     Route: 051
     Dates: start: 20110823, end: 20110829
  8. VANCOMYCIN [Suspect]
     Dosage: 500 mg, qd
     Dates: start: 20110830, end: 20110906
  9. CELLCEPT [Concomitant]
     Dosage: 1 g, bid
     Dates: start: 20120824
  10. CALCIPARINE [Concomitant]
     Route: 058
  11. TAZOCILLINE [Concomitant]
     Dosage: UNK
     Dates: start: 201108

REACTIONS (1)
  - Renal failure acute [Recovered/Resolved]
